FAERS Safety Report 10277782 (Version 1)
Quarter: 2014Q3

REPORT INFORMATION
  Report Type: Spontaneous
  Country: GB (occurrence: GB)
  Receive Date: 20140704
  Receipt Date: 20140704
  Transmission Date: 20150326
  Serious: Yes (Hospitalization, Disabling, Other)
  Sender: FDA-Public Use
  Company Number: GB-009507513-1407GBR001481

PATIENT
  Sex: Male

DRUGS (2)
  1. SINGULAIR [Suspect]
     Active Substance: MONTELUKAST SODIUM
     Dosage: UNK
     Route: 048
     Dates: start: 1999
  2. SINGULAIR [Suspect]
     Active Substance: MONTELUKAST SODIUM
     Dosage: UNK
     Route: 048
     Dates: start: 2008, end: 201301

REACTIONS (9)
  - Traumatic lung injury [Recovered/Resolved]
  - Mental disorder [Recovered/Resolved]
  - Cough [Recovered/Resolved]
  - Sciatica [Recovered/Resolved]
  - Myocardial infarction [Recovered/Resolved]
  - Lung infection [Recovered/Resolved]
  - Suicide attempt [Recovered/Resolved]
  - Abdominal pain upper [Recovered/Resolved]
  - Hallucination [Recovered/Resolved]

NARRATIVE: CASE EVENT DATE: 2012
